FAERS Safety Report 8560975-6 (Version None)
Quarter: 2012Q3

REPORT INFORMATION
  Report Type: 
  Country: None (occurrence: None)
  Receive Date: 20120802
  Receipt Date: 20120727
  Transmission Date: 20120928
  Serious: Yes (Life-Threatening)
  Sender: FDA-Public Use
  Company Number: US-BAYER-2012-076836

PATIENT
  Age: 48 Year
  Sex: Female
  Weight: 73 kg

DRUGS (1)
  1. MIDOL PM CAPLETS [Suspect]
     Indication: PAIN
     Dosage: 2 DF, ONCE, BOTTLE COUNT 20S
     Route: 048
     Dates: start: 20120720, end: 20120720

REACTIONS (6)
  - THIRST [None]
  - DEPRESSED MOOD [None]
  - HEADACHE [None]
  - PRURITUS GENERALISED [None]
  - SUICIDAL IDEATION [None]
  - CONFUSIONAL STATE [None]
